FAERS Safety Report 7389681-0 (Version None)
Quarter: 2011Q2

REPORT INFORMATION
  Report Type: 
  Country: None (occurrence: None)
  Receive Date: 20110401
  Receipt Date: 20110325
  Transmission Date: 20111010
  Serious: Yes (Congenital Anomaly)
  Sender: FDA-Public Use
  Company Number: JP-MERCK-1010USA02812B1

PATIENT
  Sex: Female

DRUGS (1)
  1. DECADRON [Suspect]
     Dosage: 20UG/KA(MAX 1 MG)
     Route: 064

REACTIONS (1)
  - CONGENITAL ANOMALY [None]
